FAERS Safety Report 22127841 (Version 1)
Quarter: 2023Q1

REPORT INFORMATION
  Report Type: Spontaneous
  Country: US (occurrence: US)
  Receive Date: 20230323
  Receipt Date: 20230323
  Transmission Date: 20230418
  Serious: Yes (Other)
  Sender: FDA-Public Use
  Company Number: US-ALKEM LABORATORIES LIMITED-US-ALKEM-2022-15118

PATIENT
  Age: 16 Year
  Sex: Female

DRUGS (4)
  1. LEVETIRACETAM [Suspect]
     Active Substance: LEVETIRACETAM
     Indication: Product used for unknown indication
     Dosage: 4500 MILLIGRAM, OD
     Route: 065
  2. LEVETIRACETAM [Suspect]
     Active Substance: LEVETIRACETAM
     Dosage: 2500 MILLIGRAM UNTIL THE DAY OF LABOR, WHEN AN ADDITIONAL DOSE OF 2500 MG WAS USED
     Route: 065
  3. LEVETIRACETAM [Suspect]
     Active Substance: LEVETIRACETAM
     Dosage: 5000 MILLIGRAM, BID
     Route: 065
  4. LEVETIRACETAM [Suspect]
     Active Substance: LEVETIRACETAM
     Dosage: 3375 MG/DAY (AT 16TH WGA, FROM TO 3 TO 4 TIMES A DAY DOSING OF LVT)
     Route: 065

REACTIONS (2)
  - Seizure [Recovered/Resolved]
  - Exposure during pregnancy [Unknown]
